FAERS Safety Report 5508274-0 (Version None)
Quarter: 2007Q4

REPORT INFORMATION
  Report Type: 
  Country: None (occurrence: None)
  Receive Date: 20071106
  Receipt Date: 20071016
  Transmission Date: 20080405
  Serious: No
  Sender: FDA-Public Use
  Company Number: US-BOEHRINGER INGELHEIM PHARMACEUTICALS, INC.-2007-BP-20525BP

PATIENT
  Age: 82 Year
  Sex: Male

DRUGS (9)
  1. SPIRIVA [Suspect]
     Indication: EMPHYSEMA
     Route: 055
     Dates: start: 20070801
  2. SPIRIVA [Suspect]
     Indication: DYSPNOEA
  3. PROZAC [Concomitant]
  4. NORVASC [Concomitant]
  5. PRILOSEC [Concomitant]
  6. ATENOLOL AND CHLORTHALIDONE [Concomitant]
  7. ASPIRIN [Concomitant]
  8. CRESTOR [Concomitant]
  9. MULTI-VITAMIN [Concomitant]

REACTIONS (4)
  - DRUG ADMINISTRATION ERROR [None]
  - DRUG EFFECT DECREASED [None]
  - DYSPNOEA [None]
  - PRODUCTIVE COUGH [None]
